FAERS Safety Report 26082561 (Version 3)
Quarter: 2025Q4

REPORT INFORMATION
  Report Type: Report from Study
  Country: EU (occurrence: EU)
  Receive Date: 20251124
  Receipt Date: 20251230
  Transmission Date: 20260118
  Serious: Yes (Death, Hospitalization)
  Sender: MYLAN
  Company Number: EU-AstrazenecaRSG-2301-D926QC00001(Prod)000010

PATIENT
  Age: 49 Year
  Sex: Female
  Weight: 114 kg

DRUGS (188)
  1. PACLITAXEL [Suspect]
     Active Substance: PACLITAXEL
     Indication: Non-small cell lung cancer
     Dosage: 80 MILLIGRAM/SQ. METER
     Dates: start: 20250404, end: 20250404
  2. PACLITAXEL [Suspect]
     Active Substance: PACLITAXEL
     Dosage: 80 MILLIGRAM/SQ. METER
     Dates: start: 20250404, end: 20250404
  3. PACLITAXEL [Suspect]
     Active Substance: PACLITAXEL
     Dosage: 80 MILLIGRAM/SQ. METER
     Route: 042
     Dates: start: 20250404, end: 20250404
  4. PACLITAXEL [Suspect]
     Active Substance: PACLITAXEL
     Dosage: 80 MILLIGRAM/SQ. METER
     Route: 042
     Dates: start: 20250404, end: 20250404
  5. PACLITAXEL [Suspect]
     Active Substance: PACLITAXEL
     Dosage: 64 MILLIGRAM/SQ. METER
     Dates: start: 20250417, end: 20250417
  6. PACLITAXEL [Suspect]
     Active Substance: PACLITAXEL
     Dosage: 64 MILLIGRAM/SQ. METER
     Dates: start: 20250417, end: 20250417
  7. PACLITAXEL [Suspect]
     Active Substance: PACLITAXEL
     Dosage: 64 MILLIGRAM/SQ. METER
     Route: 042
     Dates: start: 20250417, end: 20250417
  8. PACLITAXEL [Suspect]
     Active Substance: PACLITAXEL
     Dosage: 64 MILLIGRAM/SQ. METER
     Route: 042
     Dates: start: 20250417, end: 20250417
  9. PACLITAXEL [Suspect]
     Active Substance: PACLITAXEL
     Dosage: 80 MILLIGRAM/SQ. METER
     Dates: start: 20250320, end: 20250320
  10. PACLITAXEL [Suspect]
     Active Substance: PACLITAXEL
     Dosage: 80 MILLIGRAM/SQ. METER
     Dates: start: 20250320, end: 20250320
  11. PACLITAXEL [Suspect]
     Active Substance: PACLITAXEL
     Dosage: 80 MILLIGRAM/SQ. METER
     Route: 042
     Dates: start: 20250320, end: 20250320
  12. PACLITAXEL [Suspect]
     Active Substance: PACLITAXEL
     Dosage: 80 MILLIGRAM/SQ. METER
     Route: 042
     Dates: start: 20250320, end: 20250320
  13. PACLITAXEL [Suspect]
     Active Substance: PACLITAXEL
     Dosage: 80 MILLIGRAM/SQ. METER
     Dates: start: 20250221, end: 20250221
  14. PACLITAXEL [Suspect]
     Active Substance: PACLITAXEL
     Dosage: 80 MILLIGRAM/SQ. METER
     Dates: start: 20250221, end: 20250221
  15. PACLITAXEL [Suspect]
     Active Substance: PACLITAXEL
     Dosage: 80 MILLIGRAM/SQ. METER
     Route: 042
     Dates: start: 20250221, end: 20250221
  16. PACLITAXEL [Suspect]
     Active Substance: PACLITAXEL
     Dosage: 80 MILLIGRAM/SQ. METER
     Route: 042
     Dates: start: 20250221, end: 20250221
  17. PACLITAXEL [Suspect]
     Active Substance: PACLITAXEL
     Dosage: 80 MILLIGRAM/SQ. METER
     Dates: start: 20250410, end: 20250410
  18. PACLITAXEL [Suspect]
     Active Substance: PACLITAXEL
     Dosage: 80 MILLIGRAM/SQ. METER
     Route: 042
     Dates: start: 20250410, end: 20250410
  19. PACLITAXEL [Suspect]
     Active Substance: PACLITAXEL
     Dosage: 80 MILLIGRAM/SQ. METER
     Dates: start: 20250410, end: 20250410
  20. PACLITAXEL [Suspect]
     Active Substance: PACLITAXEL
     Dosage: 80 MILLIGRAM/SQ. METER
     Route: 042
     Dates: start: 20250410, end: 20250410
  21. PACLITAXEL [Suspect]
     Active Substance: PACLITAXEL
     Dosage: 80 MILLIGRAM/SQ. METER
     Dates: start: 20250214, end: 20250214
  22. PACLITAXEL [Suspect]
     Active Substance: PACLITAXEL
     Dosage: 80 MILLIGRAM/SQ. METER
     Dates: start: 20250214, end: 20250214
  23. PACLITAXEL [Suspect]
     Active Substance: PACLITAXEL
     Dosage: 80 MILLIGRAM/SQ. METER
     Route: 042
     Dates: start: 20250214, end: 20250214
  24. PACLITAXEL [Suspect]
     Active Substance: PACLITAXEL
     Dosage: 80 MILLIGRAM/SQ. METER
     Route: 042
     Dates: start: 20250214, end: 20250214
  25. PACLITAXEL [Suspect]
     Active Substance: PACLITAXEL
     Dosage: 80 MILLIGRAM/SQ. METER
     Dates: start: 20250131, end: 20250131
  26. PACLITAXEL [Suspect]
     Active Substance: PACLITAXEL
     Dosage: 80 MILLIGRAM/SQ. METER
     Dates: start: 20250131, end: 20250131
  27. PACLITAXEL [Suspect]
     Active Substance: PACLITAXEL
     Dosage: 80 MILLIGRAM/SQ. METER
     Route: 042
     Dates: start: 20250131, end: 20250131
  28. PACLITAXEL [Suspect]
     Active Substance: PACLITAXEL
     Dosage: 80 MILLIGRAM/SQ. METER
     Route: 042
     Dates: start: 20250131, end: 20250131
  29. PACLITAXEL [Suspect]
     Active Substance: PACLITAXEL
     Dosage: 80 MILLIGRAM/SQ. METER
     Dates: start: 20250307, end: 20250307
  30. PACLITAXEL [Suspect]
     Active Substance: PACLITAXEL
     Dosage: 80 MILLIGRAM/SQ. METER
     Dates: start: 20250307, end: 20250307
  31. PACLITAXEL [Suspect]
     Active Substance: PACLITAXEL
     Dosage: 80 MILLIGRAM/SQ. METER
     Route: 042
     Dates: start: 20250307, end: 20250307
  32. PACLITAXEL [Suspect]
     Active Substance: PACLITAXEL
     Dosage: 80 MILLIGRAM/SQ. METER
     Route: 042
     Dates: start: 20250307, end: 20250307
  33. PACLITAXEL [Suspect]
     Active Substance: PACLITAXEL
     Dosage: 80 MILLIGRAM/SQ. METER
     Dates: start: 20250124, end: 20250124
  34. PACLITAXEL [Suspect]
     Active Substance: PACLITAXEL
     Dosage: 80 MILLIGRAM/SQ. METER
     Dates: start: 20250124, end: 20250124
  35. PACLITAXEL [Suspect]
     Active Substance: PACLITAXEL
     Dosage: 80 MILLIGRAM/SQ. METER
     Route: 042
     Dates: start: 20250124, end: 20250124
  36. PACLITAXEL [Suspect]
     Active Substance: PACLITAXEL
     Dosage: 80 MILLIGRAM/SQ. METER
     Route: 042
     Dates: start: 20250124, end: 20250124
  37. PACLITAXEL [Suspect]
     Active Substance: PACLITAXEL
     Dosage: 80 MILLIGRAM/SQ. METER
     Dates: start: 20250228, end: 20250228
  38. PACLITAXEL [Suspect]
     Active Substance: PACLITAXEL
     Dosage: 80 MILLIGRAM/SQ. METER
     Dates: start: 20250228, end: 20250228
  39. PACLITAXEL [Suspect]
     Active Substance: PACLITAXEL
     Dosage: 80 MILLIGRAM/SQ. METER
     Route: 042
     Dates: start: 20250228, end: 20250228
  40. PACLITAXEL [Suspect]
     Active Substance: PACLITAXEL
     Dosage: 80 MILLIGRAM/SQ. METER
     Route: 042
     Dates: start: 20250228, end: 20250228
  41. PACLITAXEL [Suspect]
     Active Substance: PACLITAXEL
     Dosage: 80 MILLIGRAM/SQ. METER
     Dates: start: 20250328, end: 20250328
  42. PACLITAXEL [Suspect]
     Active Substance: PACLITAXEL
     Dosage: 80 MILLIGRAM/SQ. METER
     Dates: start: 20250328, end: 20250328
  43. PACLITAXEL [Suspect]
     Active Substance: PACLITAXEL
     Dosage: 80 MILLIGRAM/SQ. METER
     Route: 042
     Dates: start: 20250328, end: 20250328
  44. PACLITAXEL [Suspect]
     Active Substance: PACLITAXEL
     Dosage: 80 MILLIGRAM/SQ. METER
     Route: 042
     Dates: start: 20250328, end: 20250328
  45. CARBOPLATIN [Suspect]
     Active Substance: CARBOPLATIN
     Indication: Non-small cell lung cancer
     Dosage: 1.5 UNK
     Dates: start: 20250124, end: 20250124
  46. CARBOPLATIN [Suspect]
     Active Substance: CARBOPLATIN
     Dosage: 1.5 UNK
     Dates: start: 20250124, end: 20250124
  47. CARBOPLATIN [Suspect]
     Active Substance: CARBOPLATIN
     Dosage: 1.5 UNK
     Route: 042
     Dates: start: 20250124, end: 20250124
  48. CARBOPLATIN [Suspect]
     Active Substance: CARBOPLATIN
     Dosage: 1.5 UNK
     Route: 042
     Dates: start: 20250124, end: 20250124
  49. CARBOPLATIN [Suspect]
     Active Substance: CARBOPLATIN
     Dosage: 1.5 UNK
     Route: 042
     Dates: start: 20250228, end: 20250228
  50. CARBOPLATIN [Suspect]
     Active Substance: CARBOPLATIN
     Dosage: 1.5 UNK
     Dates: start: 20250228, end: 20250228
  51. CARBOPLATIN [Suspect]
     Active Substance: CARBOPLATIN
     Dosage: 1.5 UNK
     Dates: start: 20250228, end: 20250228
  52. CARBOPLATIN [Suspect]
     Active Substance: CARBOPLATIN
     Dosage: 1.5 UNK
     Route: 042
     Dates: start: 20250228, end: 20250228
  53. CARBOPLATIN [Suspect]
     Active Substance: CARBOPLATIN
     Dosage: 1.2 UNK
     Dates: start: 20250320, end: 20250320
  54. CARBOPLATIN [Suspect]
     Active Substance: CARBOPLATIN
     Dosage: 1.2 UNK
     Dates: start: 20250320, end: 20250320
  55. CARBOPLATIN [Suspect]
     Active Substance: CARBOPLATIN
     Dosage: 1.2 UNK
     Route: 042
     Dates: start: 20250320, end: 20250320
  56. CARBOPLATIN [Suspect]
     Active Substance: CARBOPLATIN
     Dosage: 1.2 UNK
     Route: 042
     Dates: start: 20250320, end: 20250320
  57. CARBOPLATIN [Suspect]
     Active Substance: CARBOPLATIN
     Dosage: 1.2 UNK
     Dates: start: 20250328, end: 20250328
  58. CARBOPLATIN [Suspect]
     Active Substance: CARBOPLATIN
     Dosage: 1.2 UNK
     Dates: start: 20250328, end: 20250328
  59. CARBOPLATIN [Suspect]
     Active Substance: CARBOPLATIN
     Dosage: 1.2 UNK
     Route: 042
     Dates: start: 20250328, end: 20250328
  60. CARBOPLATIN [Suspect]
     Active Substance: CARBOPLATIN
     Dosage: 1.2 UNK
     Route: 042
     Dates: start: 20250328, end: 20250328
  61. CARBOPLATIN [Suspect]
     Active Substance: CARBOPLATIN
     Dosage: 1.2 UNK
     Route: 042
  62. CARBOPLATIN [Suspect]
     Active Substance: CARBOPLATIN
     Dosage: 1.2 UNK
  63. CARBOPLATIN [Suspect]
     Active Substance: CARBOPLATIN
     Dosage: 1.2 UNK
  64. CARBOPLATIN [Suspect]
     Active Substance: CARBOPLATIN
     Dosage: 1.2 UNK
     Route: 042
  65. CARBOPLATIN [Suspect]
     Active Substance: CARBOPLATIN
     Dosage: 1.5 UNK
     Dates: start: 20250221, end: 20250221
  66. CARBOPLATIN [Suspect]
     Active Substance: CARBOPLATIN
     Dosage: 1.5 UNK
     Route: 042
     Dates: start: 20250221, end: 20250221
  67. CARBOPLATIN [Suspect]
     Active Substance: CARBOPLATIN
     Dosage: 1.5 UNK
     Route: 042
     Dates: start: 20250221, end: 20250221
  68. CARBOPLATIN [Suspect]
     Active Substance: CARBOPLATIN
     Dosage: 1.5 UNK
     Dates: start: 20250221, end: 20250221
  69. CARBOPLATIN [Suspect]
     Active Substance: CARBOPLATIN
     Dosage: 1.5 UNK
     Dates: start: 20250307, end: 20250307
  70. CARBOPLATIN [Suspect]
     Active Substance: CARBOPLATIN
     Dosage: 1.5 UNK
     Route: 042
     Dates: start: 20250307, end: 20250307
  71. CARBOPLATIN [Suspect]
     Active Substance: CARBOPLATIN
     Dosage: 1.5 UNK
     Dates: start: 20250307, end: 20250307
  72. CARBOPLATIN [Suspect]
     Active Substance: CARBOPLATIN
     Dosage: 1.5 UNK
     Route: 042
     Dates: start: 20250307, end: 20250307
  73. CARBOPLATIN [Suspect]
     Active Substance: CARBOPLATIN
     Dosage: 1.5 UNK
     Dates: start: 20250131, end: 20250131
  74. CARBOPLATIN [Suspect]
     Active Substance: CARBOPLATIN
     Dosage: 1.5 UNK
     Dates: start: 20250131, end: 20250131
  75. CARBOPLATIN [Suspect]
     Active Substance: CARBOPLATIN
     Dosage: 1.5 UNK
     Route: 042
     Dates: start: 20250131, end: 20250131
  76. CARBOPLATIN [Suspect]
     Active Substance: CARBOPLATIN
     Dosage: 1.5 UNK
     Route: 042
     Dates: start: 20250131, end: 20250131
  77. CARBOPLATIN [Suspect]
     Active Substance: CARBOPLATIN
     Dosage: 1.2 UNK
     Route: 042
     Dates: start: 20250410, end: 20250410
  78. CARBOPLATIN [Suspect]
     Active Substance: CARBOPLATIN
     Dosage: 1.2 UNK
     Route: 042
     Dates: start: 20250410, end: 20250410
  79. CARBOPLATIN [Suspect]
     Active Substance: CARBOPLATIN
     Dosage: 1.2 UNK
     Dates: start: 20250410, end: 20250410
  80. CARBOPLATIN [Suspect]
     Active Substance: CARBOPLATIN
     Dosage: 1.2 UNK
     Dates: start: 20250410, end: 20250410
  81. CARBOPLATIN [Suspect]
     Active Substance: CARBOPLATIN
     Dosage: 1.2 UNK
     Route: 042
     Dates: start: 20250404, end: 20250404
  82. CARBOPLATIN [Suspect]
     Active Substance: CARBOPLATIN
     Dosage: 1.2 UNK
     Route: 042
     Dates: start: 20250404, end: 20250404
  83. CARBOPLATIN [Suspect]
     Active Substance: CARBOPLATIN
     Dosage: 1.2 UNK
     Dates: start: 20250404, end: 20250404
  84. CARBOPLATIN [Suspect]
     Active Substance: CARBOPLATIN
     Dosage: 1.2 UNK
     Dates: start: 20250404, end: 20250404
  85. CARBOPLATIN [Suspect]
     Active Substance: CARBOPLATIN
     Dosage: 1.5 UNK
     Route: 042
     Dates: start: 20250214, end: 20250214
  86. CARBOPLATIN [Suspect]
     Active Substance: CARBOPLATIN
     Dosage: 1.5 UNK
     Route: 042
     Dates: start: 20250214, end: 20250214
  87. CARBOPLATIN [Suspect]
     Active Substance: CARBOPLATIN
     Dosage: 1.5 UNK
     Dates: start: 20250214, end: 20250214
  88. CARBOPLATIN [Suspect]
     Active Substance: CARBOPLATIN
     Dosage: 1.5 UNK
     Dates: start: 20250214, end: 20250214
  89. CARBOPLATIN [Suspect]
     Active Substance: CARBOPLATIN
     Dosage: UNK
  90. CARBOPLATIN [Suspect]
     Active Substance: CARBOPLATIN
     Dosage: UNK
  91. CARBOPLATIN [Suspect]
     Active Substance: CARBOPLATIN
     Dosage: UNK
     Route: 042
  92. CARBOPLATIN [Suspect]
     Active Substance: CARBOPLATIN
     Dosage: UNK
     Route: 042
  93. EPIRUBICIN [Suspect]
     Active Substance: EPIRUBICIN
     Indication: Non-small cell lung cancer
     Dosage: UNK
     Dates: start: 20250605, end: 20250605
  94. EPIRUBICIN [Suspect]
     Active Substance: EPIRUBICIN
     Dosage: UNK
     Dates: start: 20250605, end: 20250605
  95. EPIRUBICIN [Suspect]
     Active Substance: EPIRUBICIN
     Dosage: UNK
     Route: 042
     Dates: start: 20250605, end: 20250605
  96. EPIRUBICIN [Suspect]
     Active Substance: EPIRUBICIN
     Dosage: UNK
     Route: 042
     Dates: start: 20250605, end: 20250605
  97. EPIRUBICIN [Suspect]
     Active Substance: EPIRUBICIN
     Dosage: UNK
     Dates: start: 20250505, end: 20250505
  98. EPIRUBICIN [Suspect]
     Active Substance: EPIRUBICIN
     Dosage: UNK
     Dates: start: 20250505, end: 20250505
  99. EPIRUBICIN [Suspect]
     Active Substance: EPIRUBICIN
     Dosage: UNK
     Route: 042
     Dates: start: 20250505, end: 20250505
  100. EPIRUBICIN [Suspect]
     Active Substance: EPIRUBICIN
     Dosage: UNK
     Route: 042
     Dates: start: 20250505, end: 20250505
  101. EPIRUBICIN [Suspect]
     Active Substance: EPIRUBICIN
     Dosage: UNK
     Dates: start: 20250704, end: 20250704
  102. EPIRUBICIN [Suspect]
     Active Substance: EPIRUBICIN
     Dosage: UNK
     Route: 042
     Dates: start: 20250704, end: 20250704
  103. EPIRUBICIN [Suspect]
     Active Substance: EPIRUBICIN
     Dosage: UNK
     Dates: start: 20250704, end: 20250704
  104. EPIRUBICIN [Suspect]
     Active Substance: EPIRUBICIN
     Dosage: UNK
     Route: 042
     Dates: start: 20250704, end: 20250704
  105. PEMBROLIZUMAB [Suspect]
     Active Substance: PEMBROLIZUMAB
     Indication: Non-small cell lung cancer
     Dosage: 200 MILLIGRAM
     Dates: start: 20250410, end: 20250410
  106. PEMBROLIZUMAB [Suspect]
     Active Substance: PEMBROLIZUMAB
     Dosage: 200 MILLIGRAM
     Dates: start: 20250410, end: 20250410
  107. PEMBROLIZUMAB [Suspect]
     Active Substance: PEMBROLIZUMAB
     Dosage: 200 MILLIGRAM
     Route: 042
     Dates: start: 20250410, end: 20250410
  108. PEMBROLIZUMAB [Suspect]
     Active Substance: PEMBROLIZUMAB
     Dosage: 200 MILLIGRAM
     Route: 042
     Dates: start: 20250410, end: 20250410
  109. PEMBROLIZUMAB [Suspect]
     Active Substance: PEMBROLIZUMAB
     Dosage: 200 MILLIGRAM
     Dates: start: 20250505, end: 20250505
  110. PEMBROLIZUMAB [Suspect]
     Active Substance: PEMBROLIZUMAB
     Dosage: 200 MILLIGRAM
     Dates: start: 20250505, end: 20250505
  111. PEMBROLIZUMAB [Suspect]
     Active Substance: PEMBROLIZUMAB
     Dosage: 200 MILLIGRAM
     Route: 042
     Dates: start: 20250505, end: 20250505
  112. PEMBROLIZUMAB [Suspect]
     Active Substance: PEMBROLIZUMAB
     Dosage: 200 MILLIGRAM
     Route: 042
     Dates: start: 20250505, end: 20250505
  113. PEMBROLIZUMAB [Suspect]
     Active Substance: PEMBROLIZUMAB
     Dosage: 200 MILLIGRAM
     Dates: start: 20250124, end: 20250124
  114. PEMBROLIZUMAB [Suspect]
     Active Substance: PEMBROLIZUMAB
     Dosage: 200 MILLIGRAM
     Route: 042
     Dates: start: 20250124, end: 20250124
  115. PEMBROLIZUMAB [Suspect]
     Active Substance: PEMBROLIZUMAB
     Dosage: 200 MILLIGRAM
     Dates: start: 20250124, end: 20250124
  116. PEMBROLIZUMAB [Suspect]
     Active Substance: PEMBROLIZUMAB
     Dosage: 200 MILLIGRAM
     Route: 042
     Dates: start: 20250124, end: 20250124
  117. PEMBROLIZUMAB [Suspect]
     Active Substance: PEMBROLIZUMAB
     Dosage: 200 MILLIGRAM
     Dates: start: 20250605, end: 20250605
  118. PEMBROLIZUMAB [Suspect]
     Active Substance: PEMBROLIZUMAB
     Dosage: 200 MILLIGRAM
     Dates: start: 20250605, end: 20250605
  119. PEMBROLIZUMAB [Suspect]
     Active Substance: PEMBROLIZUMAB
     Dosage: 200 MILLIGRAM
     Route: 042
     Dates: start: 20250605, end: 20250605
  120. PEMBROLIZUMAB [Suspect]
     Active Substance: PEMBROLIZUMAB
     Dosage: 200 MILLIGRAM
     Route: 042
     Dates: start: 20250605, end: 20250605
  121. PEMBROLIZUMAB [Suspect]
     Active Substance: PEMBROLIZUMAB
     Dosage: 200 MILLIGRAM
     Dates: start: 20250221, end: 20250221
  122. PEMBROLIZUMAB [Suspect]
     Active Substance: PEMBROLIZUMAB
     Dosage: 200 MILLIGRAM
     Dates: start: 20250221, end: 20250221
  123. PEMBROLIZUMAB [Suspect]
     Active Substance: PEMBROLIZUMAB
     Dosage: 200 MILLIGRAM
     Route: 042
     Dates: start: 20250221, end: 20250221
  124. PEMBROLIZUMAB [Suspect]
     Active Substance: PEMBROLIZUMAB
     Dosage: 200 MILLIGRAM
     Route: 042
     Dates: start: 20250221, end: 20250221
  125. PEMBROLIZUMAB [Suspect]
     Active Substance: PEMBROLIZUMAB
     Dosage: 200 MILLIGRAM
     Dates: start: 20250320, end: 20250320
  126. PEMBROLIZUMAB [Suspect]
     Active Substance: PEMBROLIZUMAB
     Dosage: 200 MILLIGRAM
     Dates: start: 20250320, end: 20250320
  127. PEMBROLIZUMAB [Suspect]
     Active Substance: PEMBROLIZUMAB
     Dosage: 200 MILLIGRAM
     Route: 042
     Dates: start: 20250320, end: 20250320
  128. PEMBROLIZUMAB [Suspect]
     Active Substance: PEMBROLIZUMAB
     Dosage: 200 MILLIGRAM
     Route: 042
     Dates: start: 20250320, end: 20250320
  129. PEMBROLIZUMAB [Suspect]
     Active Substance: PEMBROLIZUMAB
     Dosage: 200 MILLIGRAM
     Dates: start: 20250704, end: 20250704
  130. PEMBROLIZUMAB [Suspect]
     Active Substance: PEMBROLIZUMAB
     Dosage: 200 MILLIGRAM
     Dates: start: 20250704, end: 20250704
  131. PEMBROLIZUMAB [Suspect]
     Active Substance: PEMBROLIZUMAB
     Dosage: 200 MILLIGRAM
     Route: 042
     Dates: start: 20250704, end: 20250704
  132. PEMBROLIZUMAB [Suspect]
     Active Substance: PEMBROLIZUMAB
     Dosage: 200 MILLIGRAM
     Route: 042
     Dates: start: 20250704, end: 20250704
  133. CYCLOPHOSPHAMIDE [Suspect]
     Active Substance: CYCLOPHOSPHAMIDE
     Indication: Non-small cell lung cancer
     Dosage: 600 MILLIGRAM/SQ. METER
     Dates: start: 20250505, end: 20250505
  134. CYCLOPHOSPHAMIDE [Suspect]
     Active Substance: CYCLOPHOSPHAMIDE
     Dosage: 600 MILLIGRAM/SQ. METER
     Dates: start: 20250505, end: 20250505
  135. CYCLOPHOSPHAMIDE [Suspect]
     Active Substance: CYCLOPHOSPHAMIDE
     Dosage: 600 MILLIGRAM/SQ. METER
     Route: 042
     Dates: start: 20250505, end: 20250505
  136. CYCLOPHOSPHAMIDE [Suspect]
     Active Substance: CYCLOPHOSPHAMIDE
     Dosage: 600 MILLIGRAM/SQ. METER
     Route: 042
     Dates: start: 20250505, end: 20250505
  137. CYCLOPHOSPHAMIDE [Suspect]
     Active Substance: CYCLOPHOSPHAMIDE
     Dosage: 600 MILLIGRAM/SQ. METER
     Dates: start: 20250605, end: 20250605
  138. CYCLOPHOSPHAMIDE [Suspect]
     Active Substance: CYCLOPHOSPHAMIDE
     Dosage: 600 MILLIGRAM/SQ. METER
     Dates: start: 20250605, end: 20250605
  139. CYCLOPHOSPHAMIDE [Suspect]
     Active Substance: CYCLOPHOSPHAMIDE
     Dosage: 600 MILLIGRAM/SQ. METER
     Route: 042
     Dates: start: 20250605, end: 20250605
  140. CYCLOPHOSPHAMIDE [Suspect]
     Active Substance: CYCLOPHOSPHAMIDE
     Dosage: 600 MILLIGRAM/SQ. METER
     Route: 042
     Dates: start: 20250605, end: 20250605
  141. CYCLOPHOSPHAMIDE [Suspect]
     Active Substance: CYCLOPHOSPHAMIDE
     Dosage: 600 MILLIGRAM/SQ. METER
     Dates: start: 20250704, end: 20250704
  142. CYCLOPHOSPHAMIDE [Suspect]
     Active Substance: CYCLOPHOSPHAMIDE
     Dosage: 600 MILLIGRAM/SQ. METER
     Route: 042
     Dates: start: 20250704, end: 20250704
  143. CYCLOPHOSPHAMIDE [Suspect]
     Active Substance: CYCLOPHOSPHAMIDE
     Dosage: 600 MILLIGRAM/SQ. METER
     Dates: start: 20250704, end: 20250704
  144. CYCLOPHOSPHAMIDE [Suspect]
     Active Substance: CYCLOPHOSPHAMIDE
     Dosage: 600 MILLIGRAM/SQ. METER
     Route: 042
     Dates: start: 20250704, end: 20250704
  145. ACETAMINOPHEN [Concomitant]
     Active Substance: ACETAMINOPHEN
     Indication: Pyrexia
     Dosage: 2 UNK
  146. ACETAMINOPHEN [Concomitant]
     Active Substance: ACETAMINOPHEN
     Dosage: 2 UNK
     Route: 065
  147. ACETAMINOPHEN [Concomitant]
     Active Substance: ACETAMINOPHEN
     Dosage: 2 UNK
     Route: 065
  148. ACETAMINOPHEN [Concomitant]
     Active Substance: ACETAMINOPHEN
     Dosage: 2 UNK
  149. PAROXETINE [Concomitant]
     Active Substance: PAROXETINE
     Indication: Burnout syndrome
     Dosage: 20 MILLIGRAM, QD
     Route: 061
     Dates: start: 20230725
  150. PAROXETINE [Concomitant]
     Active Substance: PAROXETINE
     Dosage: 20 MILLIGRAM, QD
     Route: 048
     Dates: start: 20230725
  151. PAROXETINE [Concomitant]
     Active Substance: PAROXETINE
     Dosage: 20 MILLIGRAM, QD
     Route: 048
     Dates: start: 20230725
  152. PAROXETINE [Concomitant]
     Active Substance: PAROXETINE
     Dosage: 20 MILLIGRAM, QD
     Route: 061
     Dates: start: 20230725
  153. FILGRASTIM [Concomitant]
     Active Substance: FILGRASTIM
     Indication: Neutropenia
     Dosage: 30 MILLIGRAM
  154. FILGRASTIM [Concomitant]
     Active Substance: FILGRASTIM
     Dosage: 30 MILLIGRAM
     Route: 058
  155. FILGRASTIM [Concomitant]
     Active Substance: FILGRASTIM
     Dosage: 30 MILLIGRAM
     Route: 058
  156. FILGRASTIM [Concomitant]
     Active Substance: FILGRASTIM
     Dosage: 30 MILLIGRAM
  157. PREDNISONE [Concomitant]
     Active Substance: PREDNISONE
     Indication: Hepatitis
     Dosage: 65 MILLIGRAM, QD
     Dates: start: 20250813, end: 20250909
  158. PREDNISONE [Concomitant]
     Active Substance: PREDNISONE
     Indication: Immune-mediated hepatitis
     Dosage: 65 MILLIGRAM, QD
     Route: 042
     Dates: start: 20250813, end: 20250909
  159. PREDNISONE [Concomitant]
     Active Substance: PREDNISONE
     Dosage: 65 MILLIGRAM, QD
     Route: 042
     Dates: start: 20250813, end: 20250909
  160. PREDNISONE [Concomitant]
     Active Substance: PREDNISONE
     Dosage: 65 MILLIGRAM, QD
     Dates: start: 20250813, end: 20250909
  161. PREDNISONE [Concomitant]
     Active Substance: PREDNISONE
     Indication: Hepatitis
     Dosage: 65 MILLIGRAM, QD
     Route: 061
     Dates: start: 20250725, end: 20250812
  162. PREDNISONE [Concomitant]
     Active Substance: PREDNISONE
     Indication: Immune-mediated hepatitis
     Dosage: 65 MILLIGRAM, QD
     Route: 048
     Dates: start: 20250725, end: 20250812
  163. PREDNISONE [Concomitant]
     Active Substance: PREDNISONE
     Dosage: 65 MILLIGRAM, QD
     Route: 048
     Dates: start: 20250725, end: 20250812
  164. PREDNISONE [Concomitant]
     Active Substance: PREDNISONE
     Dosage: 65 MILLIGRAM, QD
     Route: 061
     Dates: start: 20250725, end: 20250812
  165. TACROLIMUS [Concomitant]
     Active Substance: TACROLIMUS
     Indication: Immune-mediated hepatitis
     Dosage: 2 MILLIGRAM, BID
     Route: 061
     Dates: start: 20250901, end: 20250909
  166. TACROLIMUS [Concomitant]
     Active Substance: TACROLIMUS
     Dosage: 2 MILLIGRAM, BID
     Route: 048
     Dates: start: 20250901, end: 20250909
  167. TACROLIMUS [Concomitant]
     Active Substance: TACROLIMUS
     Dosage: 2 MILLIGRAM, BID
     Route: 048
     Dates: start: 20250901, end: 20250909
  168. TACROLIMUS [Concomitant]
     Active Substance: TACROLIMUS
     Dosage: 2 MILLIGRAM, BID
     Route: 061
     Dates: start: 20250901, end: 20250909
  169. OMEPRAZOLE [Concomitant]
     Active Substance: OMEPRAZOLE
     Indication: Arthralgia
     Dosage: 40 MILLIGRAM, QD
     Route: 061
     Dates: start: 2010
  170. OMEPRAZOLE [Concomitant]
     Active Substance: OMEPRAZOLE
     Indication: Gastrooesophageal reflux disease
     Dosage: 40 MILLIGRAM, QD
     Route: 048
     Dates: start: 2010
  171. OMEPRAZOLE [Concomitant]
     Active Substance: OMEPRAZOLE
     Dosage: 40 MILLIGRAM, QD
     Route: 048
     Dates: start: 2010
  172. OMEPRAZOLE [Concomitant]
     Active Substance: OMEPRAZOLE
     Dosage: 40 MILLIGRAM, QD
     Route: 061
     Dates: start: 2010
  173. CELLCEPT [Concomitant]
     Active Substance: MYCOPHENOLATE MOFETIL
     Indication: Immune-mediated hepatitis
     Dosage: 1 GRAM, BID
     Route: 061
     Dates: start: 20250821, end: 20250909
  174. CELLCEPT [Concomitant]
     Active Substance: MYCOPHENOLATE MOFETIL
     Dosage: 1 GRAM, BID
     Route: 048
     Dates: start: 20250821, end: 20250909
  175. CELLCEPT [Concomitant]
     Active Substance: MYCOPHENOLATE MOFETIL
     Dosage: 1 GRAM, BID
     Route: 048
     Dates: start: 20250821, end: 20250909
  176. CELLCEPT [Concomitant]
     Active Substance: MYCOPHENOLATE MOFETIL
     Dosage: 1 GRAM, BID
     Route: 061
     Dates: start: 20250821, end: 20250909
  177. QUETIAPINE [Concomitant]
     Active Substance: QUETIAPINE
     Indication: Nausea
     Dosage: 300 MILLIGRAM, QD
     Route: 061
     Dates: start: 20230725
  178. QUETIAPINE [Concomitant]
     Active Substance: QUETIAPINE
     Dosage: 300 MILLIGRAM, QD
     Route: 048
     Dates: start: 20230725
  179. QUETIAPINE [Concomitant]
     Active Substance: QUETIAPINE
     Dosage: 300 MILLIGRAM, QD
     Route: 048
     Dates: start: 20230725
  180. QUETIAPINE [Concomitant]
     Active Substance: QUETIAPINE
     Dosage: 300 MILLIGRAM, QD
     Route: 061
     Dates: start: 20230725
  181. DOLIPRANE [Concomitant]
     Active Substance: ACETAMINOPHEN
     Indication: Burnout syndrome
     Dosage: 1 GRAM
     Route: 061
  182. DOLIPRANE [Concomitant]
     Active Substance: ACETAMINOPHEN
     Dosage: 1 GRAM
     Route: 048
  183. DOLIPRANE [Concomitant]
     Active Substance: ACETAMINOPHEN
     Dosage: 1 GRAM
     Route: 048
  184. DOLIPRANE [Concomitant]
     Active Substance: ACETAMINOPHEN
     Dosage: 1 GRAM
     Route: 061
  185. AKYNZEO [Concomitant]
     Indication: Nausea
     Dosage: 300 MILLIGRAM
     Route: 061
  186. AKYNZEO [Concomitant]
     Dosage: 300 MILLIGRAM
     Route: 048
  187. AKYNZEO [Concomitant]
     Dosage: 300 MILLIGRAM
     Route: 048
  188. AKYNZEO [Concomitant]
     Dosage: 300 MILLIGRAM
     Route: 061

REACTIONS (2)
  - Hepatic cytolysis [Fatal]
  - Immune-mediated hepatitis [Fatal]

NARRATIVE: CASE EVENT DATE: 20250605
